FAERS Safety Report 8309412-7 (Version None)
Quarter: 2012Q2

REPORT INFORMATION
  Report Type: 
  Country: None (occurrence: None)
  Receive Date: 20120424
  Receipt Date: 20120424
  Transmission Date: 20120825
  Serious: No
  Sender: FDA-Public Use
  Company Number: None

PATIENT
  Sex: Female

DRUGS (1)
  1. PROVIGIL [Suspect]
     Dosage: 200MG QD BY MOUTH
     Route: 048
     Dates: start: 20120417

REACTIONS (3)
  - FEELING ABNORMAL [None]
  - DIZZINESS [None]
  - NAUSEA [None]
